FAERS Safety Report 13708138 (Version 1)
Quarter: 2017Q2

REPORT INFORMATION
  Report Type: Spontaneous
  Country: US (occurrence: US)
  Receive Date: 20170630
  Receipt Date: 20170630
  Transmission Date: 20170830
  Serious: No
  Sender: FDA-Public Use
  Company Number: US-OSMOTICA_PHARMACEUTICAL_US_LLC-POI0573201600034

PATIENT
  Age: 59 Year
  Sex: Female

DRUGS (2)
  1. VENLAFAXINE [Suspect]
     Active Substance: VENLAFAXINE HYDROCHLORIDE
     Indication: ANXIETY
  2. VENLAFAXINE [Suspect]
     Active Substance: VENLAFAXINE HYDROCHLORIDE
     Indication: OBSESSIVE-COMPULSIVE DISORDER
     Dates: start: 2009, end: 20160719

REACTIONS (3)
  - Drug effect decreased [Recovered/Resolved]
  - Feeling abnormal [Recovered/Resolved]
  - Crying [Recovered/Resolved]

NARRATIVE: CASE EVENT DATE: 201605
